FAERS Safety Report 5610040-2 (Version None)
Quarter: 2008Q1

REPORT INFORMATION
  Report Type: 
  Country: None (occurrence: None)
  Receive Date: 20080131
  Receipt Date: 20080123
  Transmission Date: 20080703
  Serious: Yes (Other)
  Sender: FDA-Public Use
  Company Number: GB-PFIZER INC-2008004081

PATIENT
  Sex: Female

DRUGS (1)
  1. LIPITOR [Suspect]
     Route: 048

REACTIONS (2)
  - CEREBROVASCULAR ACCIDENT [None]
  - DYSPHAGIA [None]
